FAERS Safety Report 11026931 (Version 3)
Quarter: 2016Q1

REPORT INFORMATION
  Report Type: Spontaneous
  Country: US (occurrence: US)
  Receive Date: 20150414
  Receipt Date: 20160302
  Transmission Date: 20160525
  Serious: No
  Sender: FDA-Public Use
  Company Number: US-JNJFOC-20150202526

PATIENT
  Age: 35 Year
  Sex: Female
  Weight: 53.07 kg

DRUGS (1)
  1. ORTHO TRI CYCLEN LO [Suspect]
     Active Substance: ETHINYL ESTRADIOL\NORGESTIMATE
     Indication: CONTRACEPTION
     Route: 048
     Dates: start: 2011

REACTIONS (5)
  - Underdose [Recovered/Resolved]
  - Drug dose omission [Recovered/Resolved]
  - Malaise [Unknown]
  - Vomiting [Unknown]
  - Vaginal haemorrhage [Unknown]

NARRATIVE: CASE EVENT DATE: 20150130
